FAERS Safety Report 4504854-X (Version None)
Quarter: 2004Q4

REPORT INFORMATION
  Report Type: 
  Country: None (occurrence: None)
  Receive Date: 20040928
  Receipt Date: 20040720
  Transmission Date: 20050328
  Serious: No
  Sender: FDA-Public Use
  Company Number: 04P-163-0267577-00

PATIENT
  Age: 69 Year
  Sex: Female
  Weight: 68.0396 kg

DRUGS (6)
  1. HUMIRA [Suspect]
     Indication: RHEUMATOID ARTHRITIS
     Dosage: 40 MG, 1 IN 2 WK, SUBCUTANEOUS
     Route: 058
     Dates: start: 20040426
  2. ACETYLSALICYLIC ACID [Concomitant]
  3. PREDNISONE [Concomitant]
  4. MELOXICAM [Concomitant]
  5. GABAPENTIN [Concomitant]
  6. FERROUS SULFATE TAB [Concomitant]

REACTIONS (3)
  - DRUG EFFECT DECREASED [None]
  - PAIN [None]
  - SWELLING [None]
